FAERS Safety Report 5988481-3 (Version None)
Quarter: 2008Q4

REPORT INFORMATION
  Report Type: 
  Country: None (occurrence: None)
  Receive Date: 20081210
  Receipt Date: 20081125
  Transmission Date: 20090506
  Serious: Yes (Hospitalization)
  Sender: FDA-Public Use
  Company Number: JP-ABBOTT-04P-087-0266466-00

PATIENT
  Sex: Male

DRUGS (9)
  1. KALETRA [Suspect]
     Indication: HIV INFECTION
     Route: 048
     Dates: start: 20040226, end: 20070218
  2. KALETRA [Suspect]
     Indication: HIV INFECTION
     Dates: start: 20070219
  3. LAMIVUDINE [Concomitant]
     Indication: HIV INFECTION
     Route: 048
     Dates: start: 20040226
  4. STAVUDINE [Concomitant]
     Indication: HIV INFECTION
     Route: 048
     Dates: start: 20040226, end: 20080316
  5. GANCICLOVIR [Concomitant]
     Indication: CYTOMEGALOVIRUS TEST
     Route: 042
     Dates: start: 20040210, end: 20040224
  6. AZITHROMYCIN [Concomitant]
     Indication: ANTIBIOTIC PROPHYLAXIS
     Route: 048
     Dates: start: 20040226, end: 20060528
  7. BACTRIM [Concomitant]
     Indication: ANTIFUNGAL PROPHYLAXIS
     Route: 048
     Dates: start: 20041226, end: 20050523
  8. ABACAVIR SULFATE [Concomitant]
     Indication: HIV INFECTION
     Route: 048
     Dates: start: 20080317
  9. LACTOMIN [Concomitant]
     Indication: ENTEROCOLITIS
     Route: 048
     Dates: start: 20070401

REACTIONS (6)
  - COLON OPERATION [None]
  - ENTEROCOLITIS [None]
  - HYPERAMYLASAEMIA [None]
  - HYPERLIPIDAEMIA [None]
  - LIVER DISORDER [None]
  - WHITE BLOOD CELL COUNT DECREASED [None]
